FAERS Safety Report 21184969 (Version 1)
Quarter: 2022Q3

REPORT INFORMATION
  Report Type: Spontaneous
  Country: CA (occurrence: CA)
  Receive Date: 20220808
  Receipt Date: 20220808
  Transmission Date: 20221027
  Serious: Yes (Other)
  Sender: FDA-Public Use
  Company Number: None

PATIENT
  Age: 40 Year
  Sex: Female

DRUGS (29)
  1. METHOTREXATE [Suspect]
     Active Substance: METHOTREXATE
     Indication: Product used for unknown indication
     Route: 058
  2. AZATHIOPRINE [Concomitant]
     Active Substance: AZATHIOPRINE
  3. HUMIRA [Concomitant]
     Active Substance: ADALIMUMAB
     Route: 058
  4. HYDROXYCHLOROQUINE [Concomitant]
     Active Substance: HYDROXYCHLOROQUINE
  5. INFLIXIMAB [Concomitant]
     Active Substance: INFLIXIMAB
     Dosage: CYCLICAL
  6. MEDROL [Concomitant]
     Active Substance: METHYLPREDNISOLONE
  7. METHYLPREDNISOLONE SODIUM SUCCINATE [Concomitant]
     Active Substance: METHYLPREDNISOLONE SODIUM SUCCINATE
     Route: 042
  8. PREDNISONE [Concomitant]
     Active Substance: PREDNISONE
  9. METHOTREXATE [Suspect]
     Active Substance: METHOTREXATE
     Indication: Product used for unknown indication
     Route: 058
  10. METHOTREXATE [Suspect]
     Active Substance: METHOTREXATE
     Indication: Product used for unknown indication
     Route: 058
  11. AZATHIOPRINE [Concomitant]
     Active Substance: AZATHIOPRINE
     Dosage: 1 EVERY 1 DAYS
  12. AZATHIOPRINE [Concomitant]
     Active Substance: AZATHIOPRINE
     Dosage: 1 EVERY 1 DAYS
  13. AZATHIOPRINE [Concomitant]
     Active Substance: AZATHIOPRINE
     Dosage: 1 EVERY 1 DAYS
     Route: 048
  14. AZATHIOPRINE [Concomitant]
     Active Substance: AZATHIOPRINE
  15. HUMIRA [Concomitant]
     Active Substance: ADALIMUMAB
     Dosage: 1 EVERY 1 WEEKS
     Route: 058
  16. HYDROXYCHLOROQUINE [Concomitant]
     Active Substance: HYDROXYCHLOROQUINE
     Dosage: 1 EVERY 1 DAYS
  17. HYDROXYCHLOROQUINE [Concomitant]
     Active Substance: HYDROXYCHLOROQUINE
  18. INFLIXIMAB [Concomitant]
     Active Substance: INFLIXIMAB
  19. MEDROL [Concomitant]
     Active Substance: METHYLPREDNISOLONE
  20. MEDROL [Concomitant]
     Active Substance: METHYLPREDNISOLONE
  21. MEDROL [Concomitant]
     Active Substance: METHYLPREDNISOLONE
     Dosage: 1 EVERY 1 DAYS
  22. MEDROL [Concomitant]
     Active Substance: METHYLPREDNISOLONE
  23. MEDROL [Concomitant]
     Active Substance: METHYLPREDNISOLONE
     Dosage: 1 EVERY 1 DAYS
  24. MEDROL [Concomitant]
     Active Substance: METHYLPREDNISOLONE
  25. MEDROL [Concomitant]
     Active Substance: METHYLPREDNISOLONE
  26. MEDROL [Concomitant]
     Active Substance: METHYLPREDNISOLONE
     Dosage: 1 EVERY 1 DAYS
  27. MEDROL [Concomitant]
     Active Substance: METHYLPREDNISOLONE
  28. MEDROL [Concomitant]
     Active Substance: METHYLPREDNISOLONE
  29. METHYLPREDNISOLONE SODIUM SUCCINATE [Concomitant]
     Active Substance: METHYLPREDNISOLONE SODIUM SUCCINATE
     Route: 042

REACTIONS (25)
  - Arthralgia [Recovered/Resolved]
  - Audiogram abnormal [Recovered/Resolved]
  - Deafness [Recovered/Resolved]
  - Diarrhoea [Recovered/Resolved]
  - Diplopia [Recovered/Resolved]
  - Disease recurrence [Recovered/Resolved]
  - Drug ineffective [Unknown]
  - Ear discomfort [Recovered/Resolved]
  - Fatigue [Recovered/Resolved]
  - Furuncle [Recovered/Resolved]
  - Haematuria [Recovered/Resolved]
  - Headache [Recovered/Resolved]
  - Inflammatory pain [Recovered/Resolved]
  - Intraocular pressure increased [Recovered/Resolved]
  - Leukocytosis [Recovered/Resolved]
  - Monoparesis [Recovered/Resolved]
  - Mouth ulceration [Recovered/Resolved]
  - Nausea [Recovered/Resolved]
  - Optic neuritis [Recovered/Resolved]
  - Pain in extremity [Recovered/Resolved]
  - Pathergy reaction [Recovered/Resolved]
  - Pyrexia [Recovered/Resolved]
  - Thrombocytosis [Recovered/Resolved]
  - Vasculitis [Recovered/Resolved]
  - Vomiting [Recovered/Resolved]
